FAERS Safety Report 9925002 (Version 1)
Quarter: 2014Q1

REPORT INFORMATION
  Report Type: Spontaneous
  Country: US (occurrence: None)
  Receive Date: 20140224
  Receipt Date: 20140224
  Transmission Date: 20141002
  Serious: No
  Sender: FDA-Public Use
  Company Number: None

PATIENT
  Age: 68 Year
  Sex: Female
  Weight: 67 kg

DRUGS (1)
  1. ENOXAPARIN [Suspect]
     Indication: THROMBOSIS PROPHYLAXIS
     Dosage: 1 SYRINGE (60MG/0.6ML) QD SUBCUTANEOUS
     Route: 058

REACTIONS (7)
  - Needle issue [None]
  - Needle issue [None]
  - Product quality issue [None]
  - Device leakage [None]
  - Device issue [None]
  - Incorrect dose administered by device [None]
  - Injection site bruising [None]
